FAERS Safety Report 6368789-2 (Version None)
Quarter: 2009Q3

REPORT INFORMATION
  Report Type: 
  Country: None (occurrence: None)
  Receive Date: 20090917
  Receipt Date: 20090917
  Transmission Date: 20100115
  Serious: Yes (Other)
  Sender: FDA-Public Use
  Company Number: None

PATIENT
  Sex: Female

DRUGS (1)
  1. CREST WHITESTRIPS, ADVANCED SEAL (HYDROGEN PEROXIDE 9.5 %) STRIP, 1STR [Suspect]
     Dosage: 2 STRIPS 1/DAY INTRAORAL
     Route: 048

REACTIONS (11)
  - EPISTAXIS [None]
  - HYPERSENSITIVITY [None]
  - NASAL CONGESTION [None]
  - OROPHARYNGEAL PAIN [None]
  - PHARYNGEAL OEDEMA [None]
  - PRODUCT TASTE ABNORMAL [None]
  - RHINORRHOEA [None]
  - THROAT IRRITATION [None]
  - THROAT TIGHTNESS [None]
  - TOOTHACHE [None]
  - VASCULAR RUPTURE [None]
